FAERS Safety Report 24535539 (Version 1)
Quarter: 2024Q4

REPORT INFORMATION
  Report Type: Spontaneous
  Country: US (occurrence: US)
  Receive Date: 20241022
  Receipt Date: 20241022
  Transmission Date: 20250114
  Serious: Yes (Life-Threatening, Other)
  Sender: Alora Pharma
  Company Number: US-ACELLA PHARMACEUTICALS, LLC-2024ALO00489

PATIENT
  Age: 32 Year
  Sex: Male

DRUGS (5)
  1. DEXTROMETHORPHAN [Suspect]
     Active Substance: DEXTROMETHORPHAN
     Dosage: GEL CAPSULE
  2. DEXTROMETHORPHAN [Suspect]
     Active Substance: DEXTROMETHORPHAN
     Dosage: TABLET; INITIAL UNKNOWN
  3. DEXTROMETHORPHAN [Suspect]
     Active Substance: DEXTROMETHORPHAN
     Dosage: 42 TABLETS
  4. GUAIFENESIN [Suspect]
     Active Substance: GUAIFENESIN
     Dosage: TABLET; INITIAL UNKNOWN
  5. GUAIFENESIN [Suspect]
     Active Substance: GUAIFENESIN
     Dosage: 42 TABLETS

REACTIONS (3)
  - Intentional overdose [Unknown]
  - Suicidal ideation [Unknown]
  - Drug abuse [Unknown]
